FAERS Safety Report 5973125-7 (Version None)
Quarter: 2008Q4

REPORT INFORMATION
  Report Type: 
  Country: None (occurrence: None)
  Receive Date: 20081126
  Receipt Date: 20081126
  Transmission Date: 20090506
  Serious: Yes (Life-Threatening)
  Sender: FDA-Public Use
  Company Number: None

PATIENT
  Age: 29 Year
  Sex: Female

DRUGS (1)
  1. ALEVE [Suspect]
     Indication: HEADACHE
     Dosage: 1 TABLET 1 TIME PO
     Route: 048
     Dates: start: 20081123, end: 20081123

REACTIONS (5)
  - ANAPHYLACTIC REACTION [None]
  - HOT FLUSH [None]
  - NAUSEA [None]
  - PAIN [None]
  - RETCHING [None]
